FAERS Safety Report 4488610-7 (Version None)
Quarter: 2004Q4

REPORT INFORMATION
  Report Type: 
  Country: None (occurrence: None)
  Receive Date: 20041026
  Receipt Date: 20041012
  Transmission Date: 20050328
  Serious: Yes (Hospitalization, Other)
  Sender: FDA-Public Use
  Company Number: USA041080846

PATIENT
  Age: 89 Year
  Sex: Female
  Weight: 44 kg

DRUGS (4)
  1. FORTEO [Suspect]
     Indication: OSTEOPOROSIS
     Dosage: 20 UG/1 DAY
     Dates: start: 20040701
  2. PLAVIX [Concomitant]
  3. ACIPHEX [Concomitant]
  4. LEVOTHYROXINE SODIUM [Concomitant]

REACTIONS (5)
  - ASTHENIA [None]
  - CARDIAC FIBRILLATION [None]
  - FATIGUE [None]
  - HEART RATE DECREASED [None]
  - HEART RATE INCREASED [None]
